FAERS Safety Report 5315995-1 (Version None)
Quarter: 2007Q2

REPORT INFORMATION
  Report Type: 
  Country: None (occurrence: None)
  Receive Date: 20070427
  Receipt Date: 20070418
  Transmission Date: 20071010
  Serious: Yes (Hospitalization)
  Sender: FDA-Public Use
  Company Number: 233060K07USA

PATIENT
  Age: 46 Year
  Sex: Female

DRUGS (5)
  1. REBIF [Suspect]
     Indication: MULTIPLE SCLEROSIS
     Dosage: SEE IMAGE
     Route: 058
     Dates: start: 20030820, end: 20070212
  2. REBIF [Suspect]
     Indication: MULTIPLE SCLEROSIS
     Dosage: SEE IMAGE
     Route: 058
     Dates: start: 20070401, end: 20070417
  3. REBIF [Suspect]
     Indication: MULTIPLE SCLEROSIS
     Dosage: SEE IMAGE
     Route: 058
     Dates: start: 20070418
  4. DEXAMETHASONE (DEXAMETHASONE /00016001/) [Concomitant]
  5. LEVOTHYROXINE (LEVOTHYROXINE /00068001/) [Concomitant]

REACTIONS (6)
  - DEHYDRATION [None]
  - FLUID INTAKE REDUCED [None]
  - NASOPHARYNGITIS [None]
  - ORAL INTAKE REDUCED [None]
  - PNEUMONIA [None]
  - RENAL FAILURE [None]
